FAERS Safety Report 16962484 (Version 1)
Quarter: 2019Q4

REPORT INFORMATION
  Report Type: Spontaneous
  Country: US (occurrence: US)
  Receive Date: 20190906
  Receipt Date: 20190906
  Transmission Date: 20200122
  Serious: Yes (Death)
  Sender: FDA-Public Use
  Company Number: None

PATIENT
  Age: 38 Year
  Sex: Male
  Weight: 105.23 kg

DRUGS (1)
  1. CEFTRIAXONE. [Suspect]
     Active Substance: CEFTRIAXONE
     Indication: INFECTION
     Route: 042
     Dates: start: 20190905, end: 20190905

REACTIONS (7)
  - Nausea [None]
  - Burning sensation [None]
  - Vomiting [None]
  - Infusion related reaction [None]
  - Anaphylactic reaction [None]
  - Unresponsive to stimuli [None]
  - Retching [None]

NARRATIVE: CASE EVENT DATE: 20190905
